FAERS Safety Report 15434706 (Version 1)
Quarter: 2018Q3

REPORT INFORMATION
  Report Type: Spontaneous
  Country: AU (occurrence: AU)
  Receive Date: 20180927
  Receipt Date: 20180927
  Transmission Date: 20181010
  Serious: Yes (Other)
  Sender: FDA-Public Use
  Company Number: PHHY2018AU103824

PATIENT
  Age: 5 Year
  Sex: Female

DRUGS (4)
  1. PREDNISONE. [Concomitant]
     Active Substance: PREDNISONE
     Indication: OPTIC NEURITIS
     Dosage: 15 MG
     Route: 048
  2. MYCOPHENOLATE MOFETIL. [Suspect]
     Active Substance: MYCOPHENOLATE MOFETIL
     Indication: DEMYELINATION
     Dosage: 22 MG/KG, QD
     Route: 065
  3. MYCOPHENOLATE MOFETIL. [Suspect]
     Active Substance: MYCOPHENOLATE MOFETIL
     Indication: OPTIC NEURITIS
  4. PREDNISONE. [Concomitant]
     Active Substance: PREDNISONE
     Indication: DEMYELINATION
     Dosage: 5 MG, QD
     Route: 048

REACTIONS (4)
  - Optic neuritis [Unknown]
  - Demyelination [Unknown]
  - Product use in unapproved indication [Unknown]
  - Disease recurrence [Unknown]
